FAERS Safety Report 16389707 (Version 1)
Quarter: 2019Q3

REPORT INFORMATION
  Report Type: Spontaneous
  Country: US (occurrence: US)
  Receive Date: 20190603
  Receipt Date: 20190603
  Transmission Date: 20191004
  Serious: Yes (Other)
  Sender: FDA-Public Use
  Company Number: None

PATIENT
  Age: 27 Year
  Sex: Female
  Weight: 57.15 kg

DRUGS (4)
  1. TYLENOL [Concomitant]
     Active Substance: ACETAMINOPHEN
  2. DIAZEPAM (5MG, AS NEEDED) [Concomitant]
  3. PLENVU [Suspect]
     Active Substance: ASCORBIC ACID\POLYETHYLENE GLYCOL 3350\POTASSIUM CHLORIDE\SODIUM ASCORBATE\SODIUM CHLORIDE\SODIUM SULFATE
     Indication: BOWEL PREPARATION
     Dosage: ?          QUANTITY:1 DOSE;OTHER FREQUENCY:ONE TIME USE;?
     Route: 048
     Dates: start: 20190417, end: 20190418
  4. ALEVE [Concomitant]
     Active Substance: NAPROXEN SODIUM

REACTIONS (4)
  - Chest discomfort [None]
  - Dyspnoea [None]
  - Hypoaesthesia [None]
  - Vomiting [None]
